FAERS Safety Report 18289278 (Version 3)
Quarter: 2020Q4

REPORT INFORMATION
  Report Type: Spontaneous
  Country: JP (occurrence: JP)
  Receive Date: 20200921
  Receipt Date: 20201211
  Transmission Date: 20210113
  Serious: Yes (Life-Threatening, Hospitalization, Other)
  Sender: FDA-Public Use
  Company Number: JP-SA-2020SA256860

PATIENT

DRUGS (10)
  1. RIFADIN [Suspect]
     Active Substance: RIFAMPIN
     Indication: PULMONARY TUBERCULOSIS
     Dosage: UNK
  2. ISONIAZID. [Suspect]
     Active Substance: ISONIAZID
     Indication: PULMONARY TUBERCULOSIS
  3. ETHAMBUTOL [Suspect]
     Active Substance: ETHAMBUTOL HYDROCHLORIDE
     Dosage: UNK
  4. ETHAMBUTOL [Suspect]
     Active Substance: ETHAMBUTOL HYDROCHLORIDE
     Indication: PULMONARY TUBERCULOSIS
  5. PYRAZINAMIDE. [Suspect]
     Active Substance: PYRAZINAMIDE
     Indication: PULMONARY TUBERCULOSIS
     Dosage: UNK
  6. CRAVIT [Suspect]
     Active Substance: LEVOFLOXACIN
     Indication: PULMONARY TUBERCULOSIS
  7. RIFADIN [Suspect]
     Active Substance: RIFAMPIN
     Dosage: UNK
  8. STREPTOMYCIN [Concomitant]
     Active Substance: STREPTOMYCIN SULFATE
     Indication: PULMONARY TUBERCULOSIS
  9. ISONIAZID. [Suspect]
     Active Substance: ISONIAZID
     Dosage: UNK
  10. PYRAZINAMIDE. [Suspect]
     Active Substance: PYRAZINAMIDE
     Dosage: UNK

REACTIONS (9)
  - Pseudoaneurysm infection [Recovered/Resolved]
  - Haematoma [Recovered/Resolved]
  - Vascular pseudoaneurysm [Recovered/Resolved]
  - Neck pain [Recovered/Resolved]
  - Vascular pseudoaneurysm ruptured [Recovered/Resolved]
  - Pyrexia [Unknown]
  - Swelling [Recovered/Resolved]
  - Lymph node tuberculosis [Recovered/Resolved]
  - Condition aggravated [Recovered/Resolved]
